FAERS Safety Report 12785248 (Version 1)
Quarter: 2016Q3

REPORT INFORMATION
  Report Type: Spontaneous
  Country: US (occurrence: US)
  Receive Date: 20160927
  Receipt Date: 20160927
  Transmission Date: 20161109
  Serious: No
  Sender: FDA-Public Use
  Company Number: US-FRI-1000082122

PATIENT
  Age: 70 Year
  Sex: Male

DRUGS (5)
  1. BP MEDICATION (NOT SPECIFIED) [Concomitant]
     Dosage: UNK
  2. CHOLESTEROL MEDICATION (NOT SPECIFIED) [Concomitant]
     Dosage: UNK
  3. LINZESS [Suspect]
     Active Substance: LINACLOTIDE
     Indication: CONSTIPATION
     Dosage: 290 ?G, QD
     Route: 048
     Dates: start: 201601
  4. METFORMIN HCL UNK [Concomitant]
     Dosage: 500 MG, BID
  5. INSULIN [Concomitant]
     Active Substance: INSULIN NOS
     Dosage: 10 IU, QD

REACTIONS (2)
  - Off label use [Not Recovered/Not Resolved]
  - Vision blurred [Recovered/Resolved]

NARRATIVE: CASE EVENT DATE: 201601
